FAERS Safety Report 23360550 (Version 1)
Quarter: 2024Q1

REPORT INFORMATION
  Report Type: Spontaneous
  Country: CN (occurrence: CN)
  Receive Date: 20240103
  Receipt Date: 20240103
  Transmission Date: 20240410
  Serious: Yes (Hospitalization)
  Sender: FDA-Public Use
  Company Number: CN-SHANGHAI JUNSHI BIOSCIENCES CO., LTD.-CN2023008923

PATIENT

DRUGS (6)
  1. TORIPALIMAB [Suspect]
     Active Substance: TORIPALIMAB
     Indication: Malignant melanoma
     Dosage: 240 MG (D1)
     Route: 041
     Dates: start: 20231016, end: 20231016
  2. TORIPALIMAB [Suspect]
     Active Substance: TORIPALIMAB
     Indication: Cervix carcinoma
  3. DACARBAZINE [Suspect]
     Active Substance: DACARBAZINE
     Indication: Malignant melanoma
     Dosage: 320 MG (D1-D3), QD
     Route: 041
     Dates: start: 20231016, end: 20231019
  4. DACARBAZINE [Suspect]
     Active Substance: DACARBAZINE
     Indication: Cervix carcinoma
  5. TEMOZOLOMIDE [Suspect]
     Active Substance: TEMOZOLOMIDE
     Indication: Malignant melanoma
     Dosage: 240MG (D1-D5), QD
     Route: 048
     Dates: start: 20231016, end: 20231020
  6. TEMOZOLOMIDE [Suspect]
     Active Substance: TEMOZOLOMIDE
     Indication: Cervix carcinoma

REACTIONS (2)
  - Myelosuppression [Recovering/Resolving]
  - Off label use [Unknown]

NARRATIVE: CASE EVENT DATE: 20231016
